FAERS Safety Report 7523682-4 (Version None)
Quarter: 2011Q2

REPORT INFORMATION
  Report Type: 
  Country: None (occurrence: None)
  Receive Date: 20110603
  Receipt Date: 20110602
  Transmission Date: 20111010
  Serious: Yes (Death, Life-Threatening, Hospitalization)
  Sender: FDA-Public Use
  Company Number: US-B.I. PHARMACEUTICALS,INC./RIDGEFIELD-2011-BP-06892BP

PATIENT
  Age: 75 Year
  Sex: Male

DRUGS (12)
  1. TIKASYN [Concomitant]
     Dosage: 50 MG
  2. PRIMAXIN [Concomitant]
     Dosage: 300 MG
  3. ALDACTONE [Concomitant]
  4. LEVOTHYROXINE SODIUM [Concomitant]
  5. MAGNESIUM OXIDE [Concomitant]
     Dosage: 800 MG
  6. MEXILETINE HYDROCHLORIDE [Concomitant]
     Dosage: 300 MG
  7. OMEPRAZOLE [Concomitant]
  8. ATACAND [Concomitant]
     Dosage: 4 MG
  9. PRADAXA [Suspect]
     Dates: end: 20110302
  10. FERROUS SULFATE TAB [Concomitant]
  11. LASIX [Concomitant]
  12. METOPROLOL TARTRATE [Concomitant]
     Dosage: 50 MG

REACTIONS (17)
  - HAEMORRHAGE [None]
  - BLOOD POTASSIUM INCREASED [None]
  - ACTIVATED PARTIAL THROMBOPLASTIN TIME PROLONGED [None]
  - PROTHROMBIN LEVEL INCREASED [None]
  - NASAL CONGESTION [None]
  - PULMONARY OEDEMA [None]
  - BLOOD CREATINE INCREASED [None]
  - HAEMOPTYSIS [None]
  - RESPIRATORY FAILURE [None]
  - BLOOD URINE PRESENT [None]
  - BLOODY AIRWAY DISCHARGE [None]
  - DEATH [None]
  - RENAL FAILURE ACUTE [None]
  - EPISTAXIS [None]
  - INTERNATIONAL NORMALISED RATIO INCREASED [None]
  - COUGH [None]
  - DYSPNOEA [None]
